FAERS Safety Report 6552791-1 (Version None)
Quarter: 2010Q1

REPORT INFORMATION
  Report Type: 
  Country: None (occurrence: None)
  Receive Date: 20100121
  Receipt Date: 20100119
  Transmission Date: 20100710
  Serious: Yes (Death)
  Sender: FDA-Public Use
  Company Number: 2010SP003922

PATIENT
  Age: 65 Year
  Sex: Male

DRUGS (1)
  1. TEMODAR [Suspect]
     Indication: MALIGNANT MELANOMA
     Dosage: ;UNK;IV
     Route: 042
     Dates: start: 20091116

REACTIONS (1)
  - DEATH [None]
